FAERS Safety Report 15100629 (Version 3)
Quarter: 2018Q3

REPORT INFORMATION
  Report Type: Report from Study
  Country: RU (occurrence: RU)
  Receive Date: 20180703
  Receipt Date: 20180712
  Transmission Date: 20181010
  Serious: Yes (Other)
  Sender: FDA-Public Use
  Company Number: RU-ASTRAZENECA-2018SE84323

PATIENT
  Age: 68 Year
  Sex: Female
  Weight: 53 kg

DRUGS (6)
  1. LIPRIMAR [Concomitant]
     Active Substance: ATORVASTATIN CALCIUM
  2. ASPIRIN CARDIO [Concomitant]
     Active Substance: ASPIRIN
  3. NOLPAZA [Concomitant]
     Active Substance: PANTOPRAZOLE SODIUM
  4. BRILINTA [Suspect]
     Active Substance: TICAGRELOR
     Indication: MYOCARDIAL INFARCTION
     Route: 048
     Dates: start: 20180306, end: 20180505
  5. LISINOPRIL. [Concomitant]
     Active Substance: LISINOPRIL
  6. NEBILET [Concomitant]
     Active Substance: NEBIVOLOL

REACTIONS (3)
  - Vascular stent occlusion [Recovered/Resolved]
  - Dyspnoea exertional [Recovered/Resolved]
  - Blood potassium increased [Unknown]

NARRATIVE: CASE EVENT DATE: 20180310
